FAERS Safety Report 19104379 (Version 1)
Quarter: 2021Q2

REPORT INFORMATION
  Report Type: Spontaneous
  Country: JP (occurrence: JP)
  Receive Date: 20210407
  Receipt Date: 20210407
  Transmission Date: 20210717
  Serious: Yes (Hospitalization, Other)
  Sender: FDA-Public Use
  Company Number: JP-VALIDUS PHARMACEUTICALS LLC-JP-2021VAL000327

PATIENT
  Age: 34 Year
  Sex: Female

DRUGS (9)
  1. LASIX [Suspect]
     Active Substance: FUROSEMIDE
     Indication: JUGULAR VEIN DISTENSION
  2. EUTENSIN [Suspect]
     Active Substance: FUROSEMIDE
     Indication: RIGHT VENTRICULAR FAILURE
  3. TADALAFIL. [Suspect]
     Active Substance: TADALAFIL
     Indication: RIGHT VENTRICULAR FAILURE
  4. EUTENSIN [Suspect]
     Active Substance: FUROSEMIDE
     Indication: OEDEMA PERIPHERAL
     Route: 048
  5. LASIX [Suspect]
     Active Substance: FUROSEMIDE
     Indication: OEDEMA PERIPHERAL
     Route: 048
  6. LASIX [Suspect]
     Active Substance: FUROSEMIDE
     Indication: RIGHT VENTRICULAR FAILURE
  7. EUTENSIN [Suspect]
     Active Substance: FUROSEMIDE
     Indication: JUGULAR VEIN DISTENSION
  8. TADALAFIL. [Suspect]
     Active Substance: TADALAFIL
     Indication: JUGULAR VEIN DISTENSION
     Route: 048
  9. TADALAFIL. [Suspect]
     Active Substance: TADALAFIL
     Indication: OEDEMA PERIPHERAL

REACTIONS (5)
  - Hypotension [Unknown]
  - Exposure during pregnancy [Unknown]
  - Decreased ventricular preload [Unknown]
  - Pulmonary hypertension [Unknown]
  - Vasodilatation [Unknown]
